FAERS Safety Report 8435108-7 (Version None)
Quarter: 2012Q2

REPORT INFORMATION
  Report Type: 
  Country: None (occurrence: None)
  Receive Date: 20120614
  Receipt Date: 20120606
  Transmission Date: 20120825
  Serious: Yes (Hospitalization, Other)
  Sender: FDA-Public Use
  Company Number: US-BAYER-2012-019430

PATIENT
  Age: 31 Year
  Sex: Female
  Weight: 102.4 kg

DRUGS (20)
  1. YAZ [Suspect]
     Indication: ACNE
  2. PLAQUENIL [Concomitant]
     Indication: SYSTEMIC LUPUS ERYTHEMATOSUS
     Dosage: UNK
     Dates: start: 19910101
  3. AZITHROMYCIN [Concomitant]
  4. LIMACTAL [Concomitant]
     Dosage: UNK
     Dates: start: 20030101, end: 20040101
  5. MULTI-VITAMIN [Concomitant]
     Dosage: UNK
     Dates: start: 20080101
  6. LISINOPRIL [Concomitant]
  7. YAZ [Suspect]
     Indication: PREMENSTRUAL SYNDROME
  8. LIMACTAL [Concomitant]
     Dosage: UNK
     Dates: start: 20050101, end: 20060101
  9. LEVOTHROID [Concomitant]
  10. CYMBALTA [Concomitant]
  11. VYTORIN [Concomitant]
  12. YAZ [Suspect]
     Indication: CONTRACEPTION
     Dosage: UNK
     Dates: start: 20040101, end: 20090101
  13. YAZ [Suspect]
  14. LEVOTHYROXINE SODIUM [Concomitant]
     Dosage: UNK
     Dates: start: 20050101
  15. PREDNISOLONE [Concomitant]
  16. LINSOPRIL [Concomitant]
     Dosage: UNK
     Dates: start: 19900101
  17. LEVOTHYROXINE SODIUM [Concomitant]
     Indication: HYPOTHYROIDISM
     Dosage: UNK
     Dates: start: 19910101
  18. INSULIN NOVOLOG [Concomitant]
     Indication: TYPE 1 DIABETES MELLITUS
     Dosage: UNK
     Dates: start: 19910101
  19. SIMVASTATIN [Concomitant]
     Indication: BLOOD CHOLESTEROL INCREASED
     Dosage: UNK
     Dates: start: 20000101
  20. ALBUTEROL [Concomitant]

REACTIONS (8)
  - PAIN [None]
  - CHOLECYSTITIS ACUTE [None]
  - SYNCOPE [None]
  - DEPRESSION [None]
  - BIPOLAR DISORDER [None]
  - GASTROINTESTINAL DISORDER [None]
  - INJURY [None]
  - BILIARY COLIC [None]
